FAERS Safety Report 4289679-5 (Version None)
Quarter: 2004Q1

REPORT INFORMATION
  Report Type: 
  Country: None (occurrence: None)
  Receive Date: 20040206
  Receipt Date: 20040206
  Transmission Date: 20041129
  Serious: No
  Sender: FDA-Public Use
  Company Number: None

PATIENT
  Age: 84 Year
  Sex: Female
  Weight: 42.7 kg

DRUGS (13)
  1. NATRECOR [Suspect]
     Indication: CARDIAC FAILURE CONGESTIVE
     Dosage: 2 MCG/KG BOLUS INTRAVENOUS
     Route: 042
     Dates: start: 20031113, end: 20031113
  2. EPTIFBATIDE [Concomitant]
  3. ENOXAPARIN SODIUM [Concomitant]
     Indication: CARDIAC FAILURE CONGESTIVE
  4. ... [Concomitant]
  5. ... [Concomitant]
  6. REGLAN [Concomitant]
  7. PHENERGAN [Concomitant]
  8. APAP TAB [Concomitant]
  9. METOPROLOL [Concomitant]
  10. INSULIN [Concomitant]
  11. HALOPERIDOL [Concomitant]
  12. RAMIPRIL [Concomitant]
  13. MG SULFATE [Concomitant]

REACTIONS (1)
  - HYPOTENSION [None]
